FAERS Safety Report 8279688-3 (Version None)
Quarter: 2012Q2

REPORT INFORMATION
  Report Type: 
  Country: None (occurrence: None)
  Receive Date: 20120412
  Receipt Date: 20110805
  Transmission Date: 20120825
  Serious: No
  Sender: FDA-Public Use
  Company Number: US-ASTRAZENECA-2011SE47298

PATIENT
  Age: 63 Year
  Sex: Female

DRUGS (8)
  1. IPRATROPIUM BROMIDE [Concomitant]
  2. HYDROCHLOROTHIAZIDE [Concomitant]
  3. PRILOSEC [Suspect]
     Route: 048
  4. FUROSEMIDE [Concomitant]
  5. NEXIUM [Suspect]
     Route: 048
  6. LORATADINE [Concomitant]
  7. PRAVASTATIN SODIUM [Concomitant]
  8. ZYRTEC [Concomitant]

REACTIONS (5)
  - TREATMENT FAILURE [None]
  - BACK PAIN [None]
  - ASTHMA [None]
  - RHINITIS ALLERGIC [None]
  - PAIN [None]
